FAERS Safety Report 6618434-3 (Version None)
Quarter: 2010Q1

REPORT INFORMATION
  Report Type: 
  Country: None (occurrence: None)
  Receive Date: 20100308
  Receipt Date: 20100224
  Transmission Date: 20100710
  Serious: Yes (Other)
  Sender: FDA-Public Use
  Company Number: CA-JNJCH-2010005060

PATIENT
  Age: 51 Year
  Sex: Female
  Weight: 90.7 kg

DRUGS (2)
  1. BENADRYL [Suspect]
     Indication: HYPERSENSITIVITY
     Dosage: TEXT:TWO CAPLETS
     Route: 048
     Dates: start: 20100223, end: 20100223
  2. DRUG, UNSPECIFIED [Concomitant]
     Indication: CARDIAC DISORDER
     Dosage: TEXT:UNKNOWN
     Route: 065

REACTIONS (9)
  - APHONIA [None]
  - BLOOD PRESSURE INCREASED [None]
  - DYSPHONIA [None]
  - DYSPNOEA [None]
  - MALAISE [None]
  - OFF LABEL USE [None]
  - PHARYNGEAL OEDEMA [None]
  - SWOLLEN TONGUE [None]
  - TREMOR [None]
